FAERS Safety Report 25593697 (Version 1)
Quarter: 2025Q3

REPORT INFORMATION
  Report Type: Spontaneous
  Country: US (occurrence: US)
  Receive Date: 20250722
  Receipt Date: 20250722
  Transmission Date: 20251020
  Serious: Yes (Hospitalization, Other)
  Sender: AMGEN
  Company Number: US-AMGEN-USASP2025140838

PATIENT
  Age: 51 Year
  Sex: Male

DRUGS (1)
  1. PREDNISONE [Suspect]
     Active Substance: PREDNISONE
     Indication: Scabies
     Route: 065

REACTIONS (4)
  - Swelling [Not Recovered/Not Resolved]
  - Respiratory distress [Unknown]
  - Drug ineffective for unapproved indication [Unknown]
  - Off label use [Unknown]
